FAERS Safety Report 8444705-4 (Version None)
Quarter: 2012Q2

REPORT INFORMATION
  Report Type: 
  Country: None (occurrence: None)
  Receive Date: 20120618
  Receipt Date: 20120614
  Transmission Date: 20120825
  Serious: Yes (Life-Threatening)
  Sender: FDA-Public Use
  Company Number: FR-SANOFI-AVENTIS-2012SA042530

PATIENT
  Age: 77 Year
  Sex: Male

DRUGS (8)
  1. IRBESARTAN AND HYDROCHLOROTHIAZIDE [Suspect]
     Dosage: DOSE:1 UNIT(S)
     Route: 048
  2. AMARYL [Suspect]
     Route: 048
  3. ATORVASTATIN [Suspect]
     Indication: DYSLIPIDAEMIA
     Route: 048
  4. SITAGLIPTIN PHOSPHATE [Suspect]
     Route: 048
     Dates: start: 20100101
  5. OMEPRAZOLE [Suspect]
     Route: 048
  6. ACETAMINOPHEN AND TRAMADOL HCL [Suspect]
     Indication: PAIN
     Route: 048
     Dates: start: 20111101
  7. GLUCOPHAGE [Suspect]
     Route: 048
  8. LEXOMIL [Suspect]
     Indication: ANXIETY
     Route: 048

REACTIONS (1)
  - PANCREATIC CARCINOMA [None]
